FAERS Safety Report 13381932 (Version 1)
Quarter: 2017Q1

REPORT INFORMATION
  Report Type: Report from Study
  Country: US (occurrence: US)
  Receive Date: 20170329
  Receipt Date: 20170329
  Transmission Date: 20170429
  Serious: Yes (Other)
  Sender: FDA-Public Use
  Company Number: US-BAYER-2017-007678

PATIENT
  Age: 60 Year
  Sex: Male
  Weight: 49.4 kg

DRUGS (11)
  1. NEXAVAR [Suspect]
     Active Substance: SORAFENIB
     Indication: HEPATOCELLULAR CARCINOMA
     Dosage: 200 MG TWICE IN AM
     Route: 048
     Dates: start: 2017
  2. TRAZODONE [Concomitant]
     Active Substance: TRAZODONE HYDROCHLORIDE
     Indication: INSOMNIA
     Dosage: UNK
  3. NEXAVAR [Suspect]
     Active Substance: SORAFENIB
     Indication: HEPATOCELLULAR CARCINOMA
     Dosage: 400 MG IN MORNING AND 200 MG IN EVENING DAILY
     Route: 048
     Dates: start: 20170214, end: 2017
  4. FOLIC ACID. [Concomitant]
     Active Substance: FOLIC ACID
     Dosage: 1 MG, QD
     Route: 048
  5. NEXAVAR [Suspect]
     Active Substance: SORAFENIB
     Indication: HEPATOCELLULAR CARCINOMA
     Dosage: 400 MG, BID
     Route: 048
     Dates: start: 20161001, end: 20170213
  6. MULTIVITAMIN [Concomitant]
     Active Substance: VITAMINS
     Dosage: UNK UNK, QD
  7. PANTOPRAZOLE [Concomitant]
     Active Substance: PANTOPRAZOLE SODIUM
     Dosage: 20 MG, BID
     Route: 048
  8. PROPRANOLOL [Concomitant]
     Active Substance: PROPRANOLOL HYDROCHLORIDE
     Dosage: 20 MG, BID
     Route: 048
  9. TRAZODONE [Concomitant]
     Active Substance: TRAZODONE HYDROCHLORIDE
     Indication: INSOMNIA
     Dosage: 50 MG, HS PRN
     Route: 048
  10. LASIX [Concomitant]
     Active Substance: FUROSEMIDE
     Dosage: 40 MG, QD
     Route: 048
  11. YTTRIUM (90 Y) [Concomitant]
     Active Substance: YTTRIUM Y-90

REACTIONS (24)
  - Decreased appetite [None]
  - Muscle atrophy [None]
  - Asthenia [None]
  - Oesophageal varices haemorrhage [None]
  - Fatigue [None]
  - Nausea [None]
  - Diarrhoea [None]
  - Abdominal wall wound [None]
  - Impaired healing [None]
  - Insomnia [Recovering/Resolving]
  - Abdominal pain [None]
  - Diarrhoea [None]
  - Decreased appetite [None]
  - Weight decreased [None]
  - Vascular calcification [None]
  - Hepatocellular carcinoma [None]
  - Malaise [None]
  - Drug dose omission [None]
  - Hypophagia [None]
  - Alpha 1 foetoprotein increased [None]
  - Gastric varices [None]
  - Nausea [None]
  - Weight decreased [None]
  - Scoliosis [None]

NARRATIVE: CASE EVENT DATE: 2016
